FAERS Safety Report 7717880-4 (Version None)
Quarter: 2011Q3

REPORT INFORMATION
  Report Type: 
  Country: None (occurrence: None)
  Receive Date: 20110830
  Receipt Date: 20110824
  Transmission Date: 20111222
  Serious: Yes (Death)
  Sender: FDA-Public Use
  Company Number: US-CELGENEUS-163-21880-11082800

PATIENT
  Sex: Male

DRUGS (22)
  1. REVLIMID [Suspect]
     Indication: LYMPHOMA
     Dosage: 25 MILLIGRAM
     Route: 048
     Dates: start: 20090301, end: 20110101
  2. AVODART [Concomitant]
     Route: 065
  3. BENADRYL [Concomitant]
     Route: 065
  4. FLOMAX [Concomitant]
     Route: 065
  5. LEVAQUIN [Concomitant]
     Route: 065
  6. LOMOTIL [Concomitant]
     Route: 065
  7. COLACE [Concomitant]
     Route: 065
  8. DILAUDID [Concomitant]
     Route: 065
  9. LOTENSIN [Concomitant]
     Route: 065
  10. NOVOLIN N [Concomitant]
     Route: 065
  11. VITAMIN D [Concomitant]
     Route: 065
  12. ASPIRIN [Concomitant]
     Route: 065
  13. IMMUNE GLOBULIN NOS [Concomitant]
     Route: 065
  14. MAGNESIUM [Concomitant]
     Route: 065
  15. OXYCONTIN [Concomitant]
     Route: 065
  16. ZOFRAN [Concomitant]
     Route: 065
  17. AMBIEN [Concomitant]
     Route: 065
  18. LEVOTHYROXINE SODIUM [Concomitant]
     Route: 065
  19. LOPID [Concomitant]
     Route: 065
  20. MULTI-VITAMINS [Concomitant]
     Route: 065
  21. NOVOLOG MIX 70/30 [Concomitant]
     Route: 065
  22. PHENERGAN HCL [Concomitant]
     Route: 065

REACTIONS (1)
  - DEATH [None]
